FAERS Safety Report 6382048-3 (Version None)
Quarter: 2009Q3

REPORT INFORMATION
  Report Type: 
  Country: None (occurrence: None)
  Receive Date: 20090930
  Receipt Date: 20090921
  Transmission Date: 20100115
  Serious: Yes (Hospitalization, Other)
  Sender: FDA-Public Use
  Company Number: FR-BRISTOL-MYERS SQUIBB COMPANY-14788889

PATIENT
  Age: 88 Year
  Sex: Female

DRUGS (9)
  1. GLUCOPHAGE [Suspect]
     Indication: DIABETES MELLITUS
     Route: 048
     Dates: end: 20090727
  2. LASILIX [Interacting]
     Indication: ACUTE PULMONARY OEDEMA
     Dosage: LAXILIX 40 MG TABS
     Route: 048
     Dates: end: 20090806
  3. CARDENSIEL [Concomitant]
     Indication: HYPERTENSION
     Dosage: CARDENSEIL 10 MG TABS
     Route: 048
  4. ZANIDIP [Concomitant]
     Indication: HYPERTENSION
     Dosage: ZANIDIP 20 MG TABS
     Route: 048
  5. ATARAX [Concomitant]
     Indication: ANXIETY
     Dosage: 25 MG TABS
     Route: 048
  6. DIAMICRON [Concomitant]
     Indication: DIABETES MELLITUS
     Dosage: 30 MG MODIFIED RELEASE TABS
     Route: 048
  7. PLAVIX [Concomitant]
     Dosage: 75 MG TABS
     Route: 048
  8. TAREG [Concomitant]
     Indication: HYPERTENSION
     Dosage: 160 MG TABS
     Route: 048
  9. KALEORID [Concomitant]
     Indication: HYPOKALAEMIA
     Dosage: 1000 MG TABS
     Route: 048
     Dates: end: 20090726

REACTIONS (8)
  - ACUTE PULMONARY OEDEMA [None]
  - CONFUSIONAL STATE [None]
  - DRUG INTERACTION [None]
  - HYPERKALAEMIA [None]
  - HYPONATRAEMIA [None]
  - METABOLIC ACIDOSIS [None]
  - RENAL FAILURE ACUTE [None]
  - VOMITING [None]
